FAERS Safety Report 6541621-X (Version None)
Quarter: 2010Q1

REPORT INFORMATION
  Report Type: 
  Country: None (occurrence: None)
  Receive Date: 20100119
  Receipt Date: 20091214
  Transmission Date: 20100710
  Serious: Yes (Other)
  Sender: FDA-Public Use
  Company Number: US-ASTRAZENECA-2007UW24922

PATIENT
  Age: 74 Year
  Sex: Female
  Weight: 49.9 kg

DRUGS (7)
  1. ARIMIDEX [Suspect]
     Indication: BREAST CANCER
     Route: 048
     Dates: start: 20070701
  2. FOSI [Concomitant]
  3. ACTOS [Concomitant]
  4. FOLIC ACID [Concomitant]
  5. VITAMINS [Concomitant]
  6. LISINOPRIL [Concomitant]
  7. AMLODIPINE [Concomitant]

REACTIONS (4)
  - BACK PAIN [None]
  - CATARACT [None]
  - HYPOAESTHESIA [None]
  - MACULAR DEGENERATION [None]
